FAERS Safety Report 8016590-6 (Version None)
Quarter: 2011Q4

REPORT INFORMATION
  Report Type: 
  Country: None (occurrence: None)
  Receive Date: 20111230
  Receipt Date: 20111221
  Transmission Date: 20120403
  Serious: Yes (Hospitalization)
  Sender: FDA-Public Use
  Company Number: BR-ASTRAZENECA-2011SE53961

PATIENT
  Age: 47 Year
  Sex: Female
  Weight: 70 kg

DRUGS (2)
  1. LEVOTHYROXINE SODIUM [Concomitant]
     Route: 048
     Dates: start: 20030101
  2. ATACAND HCT [Suspect]
     Indication: HYPERTENSION
     Dosage: 16/2.5 MG DAILY
     Route: 048
     Dates: start: 20050101

REACTIONS (2)
  - ARRHYTHMIA [None]
  - VENOUS OCCLUSION [None]
